FAERS Safety Report 9076308 (Version 1)
Quarter: 2013Q1

REPORT INFORMATION
  Report Type: Report from Study
  Country: US (occurrence: US)
  Receive Date: 20130129
  Receipt Date: 20130129
  Transmission Date: 20140127
  Serious: No
  Sender: FDA-Public Use
  Company Number: US-ABBOTT-12P-163-0945671-00

PATIENT
  Age: 65 None
  Sex: Female
  Weight: 85.35 kg

DRUGS (8)
  1. HUMIRA 40 MG/0.8 ML PEN [Suspect]
     Indication: RHEUMATOID ARTHRITIS
     Dates: start: 20090529
  2. PREDNISONE [Concomitant]
     Indication: RHEUMATOID ARTHRITIS
  3. ESTRATEST [Concomitant]
     Indication: HORMONE REPLACEMENT THERAPY
  4. DICYCLOMINE [Concomitant]
     Indication: IRRITABLE BOWEL SYNDROME
  5. AMITRIPTYLINE [Concomitant]
     Indication: DEPRESSION
  6. OXYBUTYNIN [Concomitant]
     Indication: POLLAKIURIA
  7. LOSARTAN/POTASSIUM [Concomitant]
     Indication: HYPERTENSION
  8. TRAMADOL [Concomitant]
     Indication: PAIN

REACTIONS (1)
  - Toothache [Not Recovered/Not Resolved]
